FAERS Safety Report 23151212 (Version 3)
Quarter: 2024Q3

REPORT INFORMATION
  Report Type: Spontaneous
  Country: RU (occurrence: RU)
  Receive Date: 20231106
  Receipt Date: 20240902
  Transmission Date: 20241017
  Serious: Yes (Death, Life-Threatening)
  Sender: JOHNSON AND JOHNSON
  Company Number: RU-JNJFOC-20231105362

PATIENT
  Sex: Male
  Weight: 52 kg

DRUGS (10)
  1. SIRTURO [Suspect]
     Active Substance: BEDAQUILINE FUMARATE
     Indication: Tuberculosis
     Dosage: 0.2 3TW
     Route: 048
     Dates: start: 20230609, end: 20231030
  2. LEVOFLOXACIN [Suspect]
     Active Substance: LEVOFLOXACIN
     Indication: Tuberculosis
     Dosage: 1.0
     Route: 065
     Dates: start: 20230609, end: 20231030
  3. LINEZOLID [Suspect]
     Active Substance: LINEZOLID
     Indication: Tuberculosis
     Dosage: 0.6
     Route: 065
     Dates: start: 20230609, end: 20231030
  4. CLOFAZIMINE [Suspect]
     Active Substance: CLOFAZIMINE
     Indication: Tuberculosis
     Dosage: 0.1
     Route: 065
     Dates: start: 20230609, end: 20231030
  5. BISOPROLOL [Concomitant]
     Active Substance: BISOPROLOL\BISOPROLOL FUMARATE
     Indication: Hypertension
     Route: 048
     Dates: start: 20230609, end: 20231111
  6. PERINDOPRIL [Concomitant]
     Active Substance: PERINDOPRIL
     Indication: Hypertension
     Route: 065
     Dates: start: 20230609, end: 20231111
  7. FOLIC ACID [Concomitant]
     Active Substance: FOLIC ACID
     Indication: Menstrual disorder
     Route: 048
     Dates: start: 20230609
  8. ATORVASTATIN [Concomitant]
     Active Substance: ATORVASTATIN
     Indication: Cerebrovascular disorder
     Route: 048
     Dates: start: 20230609, end: 20231111
  9. ASPIRIN [Concomitant]
     Active Substance: ASPIRIN
     Indication: Cerebrovascular disorder
     Route: 048
     Dates: start: 20230609, end: 20231111
  10. BENFOTIAMINE\PYRIDOXINE [Concomitant]
     Active Substance: BENFOTIAMINE\PYRIDOXINE
     Indication: Product used for unknown indication
     Route: 065
     Dates: start: 20230609

REACTIONS (4)
  - Cerebrovascular accident [Fatal]
  - Coronary artery disease [Fatal]
  - Pneumonia [Fatal]
  - Arrhythmia [Fatal]

NARRATIVE: CASE EVENT DATE: 20231030
